FAERS Safety Report 7573226-6 (Version None)
Quarter: 2011Q2

REPORT INFORMATION
  Report Type: 
  Country: None (occurrence: None)
  Receive Date: 20110525
  Receipt Date: 20110126
  Transmission Date: 20111010
  Serious: Yes (Other)
  Sender: FDA-Public Use
  Company Number: 319913

PATIENT
  Age: 74 Year
  Sex: Female
  Weight: 62.6 kg

DRUGS (14)
  1. DIOVAN [Concomitant]
  2. NOVOLOG MIX 70/30 [Concomitant]
  3. COLACE (DOCUSATE SODIUM) [Concomitant]
  4. GABAPENTIN [Concomitant]
  5. ALLOPURINOL [Concomitant]
  6. ASPIRIN [Concomitant]
  7. CAL SUP+VITAMIN D (CALCIUM CARBONATE, COLECALCIFEROL) [Concomitant]
  8. CARVEDILOL [Concomitant]
  9. VICTOZA [Suspect]
     Indication: TYPE 2 DIABETES MELLITUS
     Dosage: 1.2 MG, QD, SUBCUTANEOUS
     Route: 058
     Dates: start: 20101001, end: 20101201
  10. TRAZODONE HCL [Concomitant]
  11. PRESTIQ (DESVENLAFAXINE SUCCINATE) [Concomitant]
  12. TRAMADOL HCL [Concomitant]
  13. CRESTOR [Concomitant]
  14. CELEBREX [Concomitant]

REACTIONS (1)
  - PANCREATITIS [None]
